FAERS Safety Report 19287923 (Version 2)
Quarter: 2021Q2

REPORT INFORMATION
  Report Type: Spontaneous
  Country: DE (occurrence: DE)
  Receive Date: 20210521
  Receipt Date: 20210625
  Transmission Date: 20210717
  Serious: Yes (Hospitalization, Other)
  Sender: FDA-Public Use
  Company Number: DE-SA-2021SA166506

PATIENT
  Age: 58 Year
  Sex: Female

DRUGS (4)
  1. L?THYROXINE [LEVOTHYROXINE] [Concomitant]
     Active Substance: LEVOTHYROXINE
     Dosage: 125 MG, QD
     Route: 048
  2. AUBAGIO [Suspect]
     Active Substance: TERIFLUNOMIDE
     Indication: MULTIPLE SCLEROSIS
     Dosage: 14 MG, QD
     Route: 048
     Dates: start: 20161117
  3. OPIPRAMOL [Concomitant]
     Active Substance: OPIPRAMOL
     Dosage: 10 MG, QD
     Route: 048
  4. ZANIPRESS [Concomitant]
     Active Substance: ENALAPRIL MALEATE\LERCANIDIPINE HYDROCHLORIDE
     Dosage: 20 MG, QD
     Route: 048

REACTIONS (2)
  - Myocardial infarction [Unknown]
  - Stent placement [Unknown]

NARRATIVE: CASE EVENT DATE: 20210219
